FAERS Safety Report 7252349-5 (Version None)
Quarter: 2011Q1

REPORT INFORMATION
  Report Type: 
  Country: None (occurrence: None)
  Receive Date: 20110129
  Receipt Date: 20100114
  Transmission Date: 20110831
  Serious: No
  Sender: FDA-Public Use
  Company Number: US-ABBOTT-10P-163-0619333-00

PATIENT
  Sex: Female

DRUGS (3)
  1. HUMIRA [Suspect]
     Route: 050
     Dates: start: 20091218
  2. HUMIRA [Suspect]
     Route: 050
     Dates: start: 20091229, end: 20091229
  3. HUMIRA [Suspect]
     Indication: CROHN'S DISEASE
     Dates: start: 20091204

REACTIONS (3)
  - VISION BLURRED [None]
  - HYPOAESTHESIA [None]
  - DIZZINESS [None]
